FAERS Safety Report 6615298-9 (Version None)
Quarter: 2010Q1

REPORT INFORMATION
  Report Type: 
  Country: None (occurrence: None)
  Receive Date: 20100305
  Receipt Date: 20100303
  Transmission Date: 20100710
  Serious: Yes (Other)
  Sender: FDA-Public Use
  Company Number: DE-SANOFI-AVENTIS-2010SA007696

PATIENT
  Age: 60 Year
  Sex: Male
  Weight: 84 kg

DRUGS (4)
  1. MULTAQ [Suspect]
     Route: 048
     Dates: start: 20091223, end: 20100211
  2. PLAVIX [Concomitant]
     Indication: ANTICOAGULANT THERAPY
     Dosage: DOSAGE: 1-0-0
     Route: 048
     Dates: start: 20080101
  3. MULTI-VITAMINS [Concomitant]
     Dosage: DOSAGE: 1-0-1
     Route: 065
     Dates: start: 20080101
  4. POTASSIUM [Concomitant]
     Dosage: DOSAGE: 1-0-0
     Route: 065
     Dates: start: 20090101

REACTIONS (4)
  - ATRIAL FIBRILLATION [None]
  - SINOATRIAL BLOCK [None]
  - SINUS ARREST [None]
  - TACHYARRHYTHMIA [None]
